FAERS Safety Report 6368935-0 (Version None)
Quarter: 2009Q3

REPORT INFORMATION
  Report Type: 
  Country: None (occurrence: None)
  Receive Date: 20090916
  Receipt Date: 20090908
  Transmission Date: 20100115
  Serious: Yes (Other)
  Sender: FDA-Public Use
  Company Number: ADR19572009

PATIENT
  Age: 17 Year
  Sex: Male

DRUGS (1)
  1. SERTRALINE HCL [Suspect]
     Dosage: ORAL
     Route: 048

REACTIONS (5)
  - ANXIETY [None]
  - DRUG DEPENDENCE [None]
  - DRUG WITHDRAWAL SYNDROME [None]
  - OBSESSIVE-COMPULSIVE DISORDER [None]
  - PARANOIA [None]
